FAERS Safety Report 8487897-3 (Version None)
Quarter: 2012Q2

REPORT INFORMATION
  Report Type: 
  Country: None (occurrence: None)
  Receive Date: 20120402
  Receipt Date: 20100816
  Transmission Date: 20120825
  Serious: Yes (Hospitalization, Other)
  Sender: FDA-Public Use
  Company Number: PHHY2010US46798

PATIENT
  Age: 67 Year
  Sex: Male
  Weight: 84.4 kg

DRUGS (4)
  1. ADVAIR HFA [Concomitant]
  2. EXFORGE [Suspect]
     Indication: HYPERTENSION
     Dosage: 320/10 MG DAILY, ORAL
     Route: 048
     Dates: start: 20100114, end: 20100603
  3. CLARITIN [Concomitant]
  4. PREDNISOLONE [Concomitant]

REACTIONS (3)
  - HAEMORRHAGE [None]
  - THROMBOCYTOPENIA [None]
  - CONTUSION [None]
